FAERS Safety Report 7927960-6 (Version None)
Quarter: 2011Q4

REPORT INFORMATION
  Report Type: 
  Country: None (occurrence: None)
  Receive Date: 20111117
  Receipt Date: 20111117
  Transmission Date: 20120403
  Serious: No
  Sender: FDA-Public Use
  Company Number: None

PATIENT
  Sex: Female

DRUGS (1)
  1. ARIXTRA [Suspect]
     Indication: HYPERCOAGULATION
     Dosage: 5MG QD SUBCUTANIOUSLY
     Route: 058
     Dates: start: 20080904

REACTIONS (3)
  - DYSPNOEA [None]
  - PRODUCT SUBSTITUTION ISSUE [None]
  - CHEST DISCOMFORT [None]
